FAERS Safety Report 17307650 (Version 1)
Quarter: 2020Q1

REPORT INFORMATION
  Report Type: Spontaneous
  Country: US (occurrence: US)
  Receive Date: 20200122
  Receipt Date: 20200122
  Transmission Date: 20200409
  Serious: Yes (Hospitalization)
  Sender: FDA-Public Use
  Company Number: None

PATIENT
  Age: 21 Year
  Sex: Female
  Weight: 67.5 kg

DRUGS (1)
  1. MONISTAT 7 [Suspect]
     Active Substance: MICONAZOLE NITRATE
     Indication: FUNGAL INFECTION
     Dosage: ?          QUANTITY:7 INJECTION(S);?
     Route: 067
     Dates: start: 20200122, end: 20200122

REACTIONS (4)
  - Vulvovaginal pruritus [None]
  - Vulvovaginal discomfort [None]
  - Vulvovaginal burning sensation [None]
  - Vulvovaginal swelling [None]

NARRATIVE: CASE EVENT DATE: 20200122
